FAERS Safety Report 21033254 (Version 1)
Quarter: 2022Q2

REPORT INFORMATION
  Report Type: Spontaneous
  Country: US (occurrence: None)
  Receive Date: 20220630
  Receipt Date: 20220630
  Transmission Date: 20220721
  Serious: Yes (Life-Threatening, Hospitalization, Disabling)
  Sender: FDA-Public Use
  Company Number: None

PATIENT
  Sex: Female
  Weight: 72 kg

DRUGS (3)
  1. MIFEPRISTONE [Suspect]
     Active Substance: MIFEPRISTONE
     Indication: Abortion
     Dosage: OTHER FREQUENCY : 2 DOSES;?
     Route: 048
  2. BUPROPION [Concomitant]
     Active Substance: BUPROPION
  3. LISINOPRIL [Concomitant]

REACTIONS (6)
  - Vaginal haemorrhage [None]
  - Uterine dilation and curettage [None]
  - Shock [None]
  - Dizziness [None]
  - Asthenia [None]
  - Maternal exposure during pregnancy [None]
